FAERS Safety Report 21017282 (Version 1)
Quarter: 2022Q2

REPORT INFORMATION
  Report Type: Other
  Country: DE (occurrence: DE)
  Receive Date: 20220628
  Receipt Date: 20220628
  Transmission Date: 20220721
  Serious: Yes (Death, Other)
  Sender: FDA-Public Use
  Company Number: DE-BoehringerIngelheim-2022-BI-177988

PATIENT
  Age: 62 Year
  Sex: Male

DRUGS (2)
  1. ALTEPLASE [Suspect]
     Active Substance: ALTEPLASE
     Indication: Thrombosis prophylaxis
     Route: 042
  2. SODIUM CHLORIDE [Concomitant]
     Active Substance: SODIUM CHLORIDE
     Indication: Product used for unknown indication

REACTIONS (5)
  - Intra-abdominal haemorrhage [Fatal]
  - Intestinal ischaemia [Unknown]
  - Septic shock [Unknown]
  - Disseminated intravascular coagulation [Unknown]
  - Product use in unapproved indication [Unknown]
